FAERS Safety Report 23943481 (Version 1)
Quarter: 2024Q2

REPORT INFORMATION
  Report Type: Report from Study
  Country: IL (occurrence: IL)
  Receive Date: 20240605
  Receipt Date: 20240605
  Transmission Date: 20240716
  Serious: Yes (Other)
  Sender: FDA-Public Use
  Company Number: IL-JNJFOC-20240584180

PATIENT
  Age: 12 Year
  Sex: Male

DRUGS (2)
  1. STELARA [Suspect]
     Active Substance: USTEKINUMAB
     Indication: Colitis ulcerative
     Dosage: 1 DOSE
     Route: 058
  2. MESALAMINE [Suspect]
     Active Substance: MESALAMINE
     Indication: Product used for unknown indication
     Route: 065

REACTIONS (2)
  - Tubulointerstitial nephritis [Recovered/Resolved]
  - Off label use [Unknown]
